FAERS Safety Report 11054566 (Version 1)
Quarter: 2015Q2

REPORT INFORMATION
  Report Type: Spontaneous
  Country: US (occurrence: US)
  Receive Date: 20150422
  Receipt Date: 20150422
  Transmission Date: 20150821
  Serious: No
  Sender: FDA-Public Use
  Company Number: US-MYLANLABS-2015M1001154

PATIENT
  Sex: Female

DRUGS (2)
  1. RIZATRIPTAN [Suspect]
     Active Substance: RIZATRIPTAN
     Dosage: UNK
  2. SUMATRIPTAN. [Suspect]
     Active Substance: SUMATRIPTAN
     Dosage: UNK

REACTIONS (2)
  - Palpitations [Not Recovered/Not Resolved]
  - Chest pain [Not Recovered/Not Resolved]
